FAERS Safety Report 5535098-0 (Version None)
Quarter: 2007Q4

REPORT INFORMATION
  Report Type: 
  Country: None (occurrence: None)
  Receive Date: 20071203
  Receipt Date: 20071119
  Transmission Date: 20080405
  Serious: Yes (Hospitalization)
  Sender: FDA-Public Use
  Company Number: CAP07000458

PATIENT
  Age: 65 Year
  Sex: Male

DRUGS (1)
  1. ETIDRONATE DISODIUM [Suspect]
     Dosage: 1 TABLET DAILY CYCLIC, ORAL
     Route: 048
     Dates: start: 20050101

REACTIONS (1)
  - DIVERTICULITIS [None]
